FAERS Safety Report 8824029 (Version 1)
Quarter: 2012Q4

REPORT INFORMATION
  Report Type: 
  Country: TN (occurrence: TN)
  Receive Date: 20121003
  Receipt Date: 20121003
  Transmission Date: 20130627
  Serious: Yes (Other)
  Sender: FDA-Public Use
  Company Number: PHHY2010TN094867

PATIENT
  Age: 24 Year
  Sex: Female

DRUGS (4)
  1. TERBINAFINE [Suspect]
     Indication: FUSARIUM INFECTION
     Dosage: 200 mg, per day
  2. VORICONAZOLE [Concomitant]
     Dosage: 400 mg, per day
  3. VORICONAZOLE [Concomitant]
     Dosage: 800 mg, per day
  4. VORICONAZOLE [Concomitant]
     Dosage: 200 mg, per day

REACTIONS (2)
  - Skin lesion [Recovering/Resolving]
  - Palatal disorder [Recovering/Resolving]
